FAERS Safety Report 5281258-6 (Version None)
Quarter: 2007Q1

REPORT INFORMATION
  Report Type: 
  Country: None (occurrence: None)
  Receive Date: 20061218
  Receipt Date: 20060320
  Transmission Date: 20070707
  Serious: Yes (Other)
  Sender: FDA-Public Use
  Company Number: US200604000250

PATIENT
  Age: 21 Year
  Sex: Female

DRUGS (5)
  1. HUMULIN R [Suspect]
     Indication: DIABETES MELLITUS
  2. HUMULIN L [Suspect]
     Indication: DIABETES MELLITUS
  3. TEGRETOL [Concomitant]
  4. ALBUTEROL [Concomitant]
  5. FLOVENT [Concomitant]

REACTIONS (10)
  - ABORTION SPONTANEOUS [None]
  - ABORTION THREATENED [None]
  - BLOOD GLUCOSE DECREASED [None]
  - CONVULSION [None]
  - DRUG EXPOSURE DURING PREGNANCY [None]
  - INFERTILITY [None]
  - NAUSEA [None]
  - PAIN IN EXTREMITY [None]
  - VAGINAL HAEMORRHAGE [None]
  - VOMITING [None]
